FAERS Safety Report 4939057-8 (Version None)
Quarter: 2006Q1

REPORT INFORMATION
  Report Type: 
  Country: None (occurrence: None)
  Receive Date: 20060306
  Receipt Date: 20060222
  Transmission Date: 20060701
  Serious: No
  Sender: FDA-Public Use
  Company Number: 220531

PATIENT
  Age: 40 Year
  Sex: Female
  Weight: 69.4 kg

DRUGS (4)
  1. NUTROPIN AQ [Suspect]
     Indication: PITUITARY TUMOUR BENIGN
     Dosage: 0.4 MG, QD
     Dates: start: 20050728, end: 20060222
  2. PREDNISONE TAB [Concomitant]
  3. DDAVP (DESMOPRESSIN ACETATE) [Concomitant]
  4. PREMPRO [Concomitant]

REACTIONS (2)
  - GERM CELL CANCER [None]
  - PITUITARY TUMOUR [None]
